FAERS Safety Report 18177986 (Version 1)
Quarter: 2020Q3

REPORT INFORMATION
  Report Type: Spontaneous
  Country: US (occurrence: US)
  Receive Date: 20200820
  Receipt Date: 20200820
  Transmission Date: 20201103
  Serious: No
  Sender: FDA-Public Use
  Company Number: US-JAZZ-JPI-P-016934

PATIENT
  Sex: Female
  Weight: 88.64 kg

DRUGS (23)
  1. ASACOL (MESALAMINE) [Concomitant]
  2. ABILIFY [Concomitant]
     Active Substance: ARIPIPRAZOLE
  3. CONCERTA (METHYLPHENIDATE) [Concomitant]
  4. FOLIC ACID. [Concomitant]
     Active Substance: FOLIC ACID
  5. XYREM [Suspect]
     Active Substance: SODIUM OXYBATE
     Indication: NARCOLEPSY
     Dosage: 4.5 GRAM, BID
     Route: 048
  6. FISH OIL [Concomitant]
     Active Substance: FISH OIL
  7. XYREM [Suspect]
     Active Substance: SODIUM OXYBATE
     Indication: SLEEP APNOEA SYNDROME
     Route: 048
     Dates: start: 2009
  8. KRISTALOSE (LACTULOSE) [Concomitant]
  9. LEVSIN (HYOSCYAMINE) [Concomitant]
  10. EPIPEN (EPINEPHRINE AUTO INJECTOR) [Concomitant]
  11. ASPIRIN (ACETYLSALICYLIC ACID) [Concomitant]
     Active Substance: ASPIRIN
  12. CELEBRAX (CELECOXIB) [Concomitant]
  13. SKELAXIN [Concomitant]
     Active Substance: METAXALONE
  14. AMITIZA [Concomitant]
     Active Substance: LUBIPROSTONE
  15. ALBUTEROL INHALER [Concomitant]
     Active Substance: ALBUTEROL
  16. FENTANYL TRANSDERMAL SYSTEM [Suspect]
     Active Substance: FENTANYL
     Indication: PAIN
     Route: 062
     Dates: end: 20110818
  17. BUSPAR [Concomitant]
     Active Substance: BUSPIRONE HYDROCHLORIDE
  18. SEROQUEL [Concomitant]
     Active Substance: QUETIAPINE FUMARATE
  19. KEPPRA [Concomitant]
     Active Substance: LEVETIRACETAM
  20. LYRICA [Concomitant]
     Active Substance: PREGABALIN
  21. VOLTERAN (DICLOFENAC) [Concomitant]
  22. CALTRATE [Concomitant]
     Active Substance: CALCIUM CARBONATE
  23. CO Q10 500 (Q GEL LIQUID COENZYME) [Concomitant]

REACTIONS (2)
  - Hyperaesthesia [Recovered/Resolved]
  - Pain [Not Recovered/Not Resolved]

NARRATIVE: CASE EVENT DATE: 2011
